FAERS Safety Report 20184295 (Version 1)
Quarter: 2021Q4

REPORT INFORMATION
  Report Type: Spontaneous
  Country: US (occurrence: US)
  Receive Date: 20211214
  Receipt Date: 20211214
  Transmission Date: 20220303
  Serious: No
  Sender: FDA-Public Use
  Company Number: US-SK LIFE SCIENCE, INC-SKPVG-2021-001000

PATIENT

DRUGS (4)
  1. XCOPRI [Suspect]
     Active Substance: CENOBAMATE
     Indication: Seizure
     Dosage: 50 MILLIGRAM, QD, AT NIGHT 9PM
     Route: 048
     Dates: start: 202109
  2. FLUOXETINE [Concomitant]
     Active Substance: FLUOXETINE HYDROCHLORIDE
     Indication: Product used for unknown indication
     Dosage: 20 MILLIGRAM, QD
     Route: 065
  3. CLONAZEPAM [Concomitant]
     Active Substance: CLONAZEPAM
     Indication: Product used for unknown indication
     Dosage: 25 MILLIGRAM, BID, IN THE MORNING AND ONE AT NIGHT, THEY BROKE THE 0.5MG IN HALF FOR 2 DOSES
     Route: 065
  4. SINEMET [Concomitant]
     Active Substance: CARBIDOPA\LEVODOPA
     Indication: Product used for unknown indication
     Dosage: 10 MILLIGRAM, TID, BREAK 5MG IN HALF FOR 2 DOSES
     Route: 065

REACTIONS (2)
  - Obsessive-compulsive personality disorder [Not Recovered/Not Resolved]
  - Mood altered [Not Recovered/Not Resolved]
